FAERS Safety Report 17444925 (Version 1)
Quarter: 2020Q1

REPORT INFORMATION
  Report Type: Report from Study
  Country: None (occurrence: US)
  Receive Date: 20200221
  Receipt Date: 20200221
  Transmission Date: 20200409
  Serious: Yes (Congenital Anomaly)
  Sender: FDA-Public Use
  Company Number: US-ABBVIE-20K-163-3279872-00

PATIENT
  Sex: Male

DRUGS (2)
  1. TRIZIVIR [Suspect]
     Active Substance: ABACAVIR SULFATE\LAMIVUDINE\ZIDOVUDINE
     Indication: MATERNAL EXPOSURE TIMING UNSPECIFIED
     Dosage: DAILY DOSE:2
     Route: 048
  2. KALETRA [Suspect]
     Active Substance: LOPINAVIR\RITONAVIR
     Indication: MATERNAL EXPOSURE TIMING UNSPECIFIED
     Dosage: DAILY DOSE:4
     Route: 064

REACTIONS (7)
  - Heart disease congenital [Unknown]
  - Transposition of the great vessels [Unknown]
  - Congenital anomaly [Unknown]
  - Ventricular septal defect [Unknown]
  - Foetal exposure during pregnancy [Unknown]
  - Double outlet right ventricle [Unknown]
  - Congenital nasal septum deviation [Unknown]
